FAERS Safety Report 25937779 (Version 1)
Quarter: 2025Q4

REPORT INFORMATION
  Report Type: Spontaneous
  Country: GB (occurrence: GB)
  Receive Date: 20251018
  Receipt Date: 20251018
  Transmission Date: 20260118
  Serious: Yes (Other)
  Sender: HETERO
  Company Number: None

PATIENT
  Age: 55 Year
  Sex: Female
  Weight: 49 kg

DRUGS (6)
  1. AMLODIPINE [Interacting]
     Active Substance: AMLODIPINE BESYLATE
     Indication: Heart rate increased
     Dosage: 5 MILLIGRAM, Q.D.
     Route: 065
     Dates: start: 20250914
  2. AMLODIPINE [Interacting]
     Active Substance: AMLODIPINE BESYLATE
     Indication: Hypertension
  3. ATORVASTATIN [Interacting]
     Active Substance: ATORVASTATIN
     Indication: Heart rate increased
     Dosage: 80 MILLIGRAM, Q.D. (80 MG ONCE A DAY AT NIGHT)
     Route: 065
     Dates: start: 20250914, end: 20250929
  4. ATORVASTATIN [Interacting]
     Active Substance: ATORVASTATIN
     Indication: Hypertension
  5. ASPIRIN [Concomitant]
     Active Substance: ASPIRIN
     Indication: Hypertension
     Dosage: 80 MILLIGRAM, Q.D.
     Route: 065
     Dates: start: 20250914, end: 20250930
  6. MIRTAZAPINE [Concomitant]
     Active Substance: MIRTAZAPINE
     Indication: Anxiety
     Dosage: UNK
     Route: 065
     Dates: start: 20250918

REACTIONS (3)
  - Pyrexia [Recovered/Resolved]
  - Drug interaction [Unknown]
  - Hepatic enzyme increased [Unknown]

NARRATIVE: CASE EVENT DATE: 20250928
